FAERS Safety Report 8086648 (Version 4)
Quarter: 2014Q2

REPORT INFORMATION
  Report Type: Spontaneous
  Country: US (occurrence: US)
  Receive Date: 20110811
  Receipt Date: 20140630
  Transmission Date: 20141212
  Serious: Yes (Death, Hospitalization)
  Sender: FDA-Public Use
  Company Number: US-GLAXOSMITHKLINE-A0940273A

PATIENT
  Age: 66 Year
  Sex: Female

DRUGS (1)
  1. AVANDIA [Suspect]
     Indication: DIABETES MELLITUS
     Dosage: 4MG PER DAY
     Route: 048
     Dates: start: 200101, end: 200301

REACTIONS (5)
  - Cardiac failure congestive [Fatal]
  - Myocardial infarction [Fatal]
  - Transient ischaemic attack [Unknown]
  - Cerebrovascular accident [Unknown]
  - Arteriosclerosis coronary artery [Fatal]
